FAERS Safety Report 9915419 (Version 1)
Quarter: 2014Q1

REPORT INFORMATION
  Report Type: Spontaneous
  Country: US (occurrence: US)
  Receive Date: 20140221
  Receipt Date: 20140221
  Transmission Date: 20141002
  Serious: No
  Sender: FDA-Public Use
  Company Number: US-BIOGENIDEC-2013BI054014

PATIENT
  Age: 45 Year
  Sex: Female

DRUGS (4)
  1. AVONEX [Suspect]
     Indication: MULTIPLE SCLEROSIS
     Route: 030
     Dates: start: 20100614
  2. AVONEX [Suspect]
     Indication: MULTIPLE SCLEROSIS
     Route: 030
     Dates: start: 201007
  3. AVONEX [Suspect]
     Indication: MULTIPLE SCLEROSIS
     Route: 030
     Dates: start: 20100804
  4. AVONEX [Suspect]
     Indication: MULTIPLE SCLEROSIS
     Route: 030

REACTIONS (30)
  - Lower extremity mass [Unknown]
  - Memory impairment [Not Recovered/Not Resolved]
  - Cytomegalovirus infection [Not Recovered/Not Resolved]
  - Systemic lupus erythematosus [Not Recovered/Not Resolved]
  - Contusion [Unknown]
  - Vision blurred [Unknown]
  - Myopia [Not Recovered/Not Resolved]
  - Lyme disease [Not Recovered/Not Resolved]
  - Temperature regulation disorder [Unknown]
  - Hypoaesthesia [Unknown]
  - Peripheral coldness [Unknown]
  - Skin discolouration [Unknown]
  - Speech disorder [Not Recovered/Not Resolved]
  - Arthropathy [Unknown]
  - Feeling cold [Unknown]
  - Musculoskeletal disorder [Unknown]
  - Incoherent [Unknown]
  - Injection site induration [Not Recovered/Not Resolved]
  - Back pain [Not Recovered/Not Resolved]
  - Infectious mononucleosis [Not Recovered/Not Resolved]
  - Joint lock [Not Recovered/Not Resolved]
  - Muscle tightness [Unknown]
  - Fatigue [Not Recovered/Not Resolved]
  - Pain [Unknown]
  - Paraesthesia [Unknown]
  - Feeling hot [Unknown]
  - Multiple sclerosis relapse [Recovered/Resolved]
  - Neck pain [Not Recovered/Not Resolved]
  - Arthritis [Not Recovered/Not Resolved]
  - Muscular weakness [Unknown]
